FAERS Safety Report 7361972-9 (Version None)
Quarter: 2011Q1

REPORT INFORMATION
  Report Type: 
  Country: None (occurrence: None)
  Receive Date: 20110315
  Receipt Date: 20110315
  Transmission Date: 20110831
  Serious: Yes (Other)
  Sender: FDA-Public Use
  Company Number: None

PATIENT
  Sex: Female
  Weight: 67.1324 kg

DRUGS (2)
  1. METOCLOPRAMIDE [Suspect]
     Indication: VOMITING
     Dates: start: 20110105
  2. METOCLOPRAMIDE [Suspect]
     Indication: VOMITING
     Dates: start: 20110104

REACTIONS (6)
  - INSOMNIA [None]
  - FALL [None]
  - UNEVALUABLE EVENT [None]
  - ABNORMAL DREAMS [None]
  - JOINT INJURY [None]
  - INJURY [None]
